FAERS Safety Report 20787112 (Version 1)
Quarter: 2022Q2

REPORT INFORMATION
  Report Type: Other
  Country: IN (occurrence: None)
  Receive Date: 20220505
  Receipt Date: 20220505
  Transmission Date: 20220720
  Serious: Yes (Other)
  Sender: FDA-Public Use
  Company Number: IN-ROCHE-3086146

PATIENT
  Age: 41 Year
  Sex: Female

DRUGS (1)
  1. PERJETA [Suspect]
     Active Substance: PERTUZUMAB
     Indication: Breast cancer
     Dosage: 21 DAYS INTERVAL
     Route: 042

REACTIONS (5)
  - Pleural effusion [Unknown]
  - Pyrexia [Unknown]
  - Impaired healing [Unknown]
  - Pruritus [Unknown]
  - Fatigue [Unknown]
